FAERS Safety Report 9318984 (Version 2)
Quarter: 2013Q4

REPORT INFORMATION
  Report Type: Spontaneous
  Country: US (occurrence: US)
  Receive Date: 20130530
  Receipt Date: 20131119
  Transmission Date: 20140711
  Serious: Yes (Disabling, Other)
  Sender: FDA-Public Use
  Company Number: US-NOVEN-ALL1-2009-01392

PATIENT
  Sex: Female
  Weight: 24.94 kg

DRUGS (3)
  1. DAYTRANA [Suspect]
     Indication: ATTENTION DEFICIT/HYPERACTIVITY DISORDER
     Dosage: 10 MG, 1X/DAY:QD
     Route: 062
     Dates: start: 2006, end: 2006
  2. DAYTRANA [Suspect]
     Dosage: 15 MG, 1X/DAY:QD
     Route: 062
     Dates: start: 2006, end: 2008
  3. DAYTRANA [Suspect]
     Dosage: UNK
     Route: 062
     Dates: start: 200703, end: 200805

REACTIONS (8)
  - Vitiligo [Not Recovered/Not Resolved]
  - Psychological trauma [Not Recovered/Not Resolved]
  - Lethargy [Recovered/Resolved]
  - Application site irritation [Recovered/Resolved]
  - Application site dryness [Recovered/Resolved]
  - Drug effect decreased [Recovered/Resolved]
  - Application site erythema [Recovered/Resolved]
  - Weight decreased [Recovered/Resolved]
